FAERS Safety Report 18295534 (Version 11)
Quarter: 2025Q2

REPORT INFORMATION
  Report Type: Report from Study
  Country: DE (occurrence: DE)
  Receive Date: 20200922
  Receipt Date: 20250609
  Transmission Date: 20250716
  Serious: Yes (Hospitalization)
  Sender: NOVARTIS
  Company Number: NVSC2020DE256040

PATIENT
  Sex: Female

DRUGS (22)
  1. COSENTYX [Suspect]
     Active Substance: SECUKINUMAB
     Indication: Axial spondyloarthritis
     Route: 042
     Dates: start: 20181204, end: 20191101
  2. COSENTYX [Suspect]
     Active Substance: SECUKINUMAB
     Dosage: 150 MG, Q3W
     Route: 042
     Dates: start: 20200101, end: 20200924
  3. COSENTYX [Suspect]
     Active Substance: SECUKINUMAB
     Route: 042
     Dates: start: 20201117, end: 20220115
  4. COSENTYX [Suspect]
     Active Substance: SECUKINUMAB
     Route: 042
     Dates: start: 20220215, end: 20220315
  5. COSENTYX [Suspect]
     Active Substance: SECUKINUMAB
     Dosage: 300 MG, Q4W
     Route: 065
     Dates: start: 20220415
  6. ETORICOXIB [Suspect]
     Active Substance: ETORICOXIB
     Indication: Product used for unknown indication
     Route: 065
     Dates: start: 20181121, end: 20190515
  7. ETORICOXIB [Suspect]
     Active Substance: ETORICOXIB
     Route: 065
     Dates: start: 20201015
  8. ETORICOXIB [Suspect]
     Active Substance: ETORICOXIB
     Route: 065
     Dates: start: 20210315
  9. ACEMETACIN [Concomitant]
     Active Substance: ACEMETACIN
     Indication: Product used for unknown indication
     Dosage: 180 MG, QD
     Route: 065
     Dates: start: 20200514, end: 20200530
  10. ACEMETACIN [Concomitant]
     Active Substance: ACEMETACIN
     Dosage: 180 MG, QD
     Route: 065
  11. IBUPROFEN [Concomitant]
     Active Substance: IBUPROFEN
     Indication: Product used for unknown indication
     Dosage: 1600 MG, QD
     Route: 065
     Dates: start: 20190515
  12. IBUPROFEN [Concomitant]
     Active Substance: IBUPROFEN
     Route: 065
  13. IBUPROFEN [Concomitant]
     Active Substance: IBUPROFEN
     Dosage: 1200 MG, QD
     Route: 065
     Dates: end: 20200530
  14. IBUPROFEN [Concomitant]
     Active Substance: IBUPROFEN
     Dosage: 1200 MG, QD
     Route: 065
     Dates: start: 20211218
  15. Celecaxiro [Concomitant]
     Indication: Product used for unknown indication
     Dosage: 400 MG, QD
     Route: 065
     Dates: start: 20230616
  16. ESOMEPRAZOLE [Concomitant]
     Active Substance: ESOMEPRAZOLE
     Indication: Product used for unknown indication
     Route: 065
  17. DOXEPIN [Concomitant]
     Active Substance: DOXEPIN
     Indication: Product used for unknown indication
     Route: 065
  18. Methocarbamol al [Concomitant]
     Indication: Product used for unknown indication
     Route: 065
  19. PROGESTERONE [Concomitant]
     Active Substance: PROGESTERONE
     Indication: Product used for unknown indication
     Route: 065
  20. ESTRADIOL [Concomitant]
     Active Substance: ESTRADIOL
     Indication: Product used for unknown indication
     Route: 065
  21. POLYETHYLENE GLYCOLS [Concomitant]
     Active Substance: POLYETHYLENE GLYCOLS
     Indication: Product used for unknown indication
     Route: 065
  22. MAGNESIUM [Concomitant]
     Active Substance: MAGNESIUM
     Indication: Product used for unknown indication
     Route: 065

REACTIONS (31)
  - Axial spondyloarthritis [Recovered/Resolved]
  - Spinal osteoarthritis [Unknown]
  - Condition aggravated [Recovered/Resolved]
  - Back pain [Recovered/Resolved]
  - Myelopathy [Recovered/Resolved]
  - Axial spondyloarthritis [Recovered/Resolved]
  - Influenza like illness [Unknown]
  - Otitis media [Unknown]
  - COVID-19 [Unknown]
  - Oropharyngeal pain [Unknown]
  - Nasopharyngitis [Unknown]
  - Oral herpes [Unknown]
  - Tongue coated [Unknown]
  - Axial spondyloarthritis [Unknown]
  - Osteoarthritis [Unknown]
  - Rotator cuff syndrome [Unknown]
  - Conjunctivitis [Unknown]
  - Dry skin [Unknown]
  - Erythema [Unknown]
  - Migraine [Unknown]
  - Sensory level abnormal [Unknown]
  - Meniscus cyst [Unknown]
  - Arthralgia [Unknown]
  - Abdominal pain upper [Unknown]
  - Upper respiratory tract infection [Unknown]
  - Nasopharyngitis [Unknown]
  - Oropharyngeal pain [Unknown]
  - Oropharyngeal pain [Unknown]
  - Off label use [Unknown]
  - Knee impingement syndrome [Unknown]
  - Gastrointestinal tract irritation [Unknown]

NARRATIVE: CASE EVENT DATE: 20200115
